FAERS Safety Report 5988526-0 (Version None)
Quarter: 2008Q4

REPORT INFORMATION
  Report Type: 
  Country: None (occurrence: None)
  Receive Date: 20081208
  Receipt Date: 20081208
  Transmission Date: 20090506
  Serious: Yes (Other)
  Sender: FDA-Public Use
  Company Number: None

PATIENT
  Age: 53 Year
  Sex: Female
  Weight: 54.4316 kg

DRUGS (1)
  1. CREST PRO HEALTH CPC ORAL RINSE PROCTOR AND GAMBLE [Suspect]
     Indication: DENTAL DISORDER PROPHYLAXIS
     Dosage: 20ML. TWICE DAILY DENTAL
     Route: 004
     Dates: start: 20081115, end: 20081203

REACTIONS (2)
  - GINGIVAL DISCOLOURATION [None]
  - TOOTH DISCOLOURATION [None]
